FAERS Safety Report 9021309 (Version 1)
Quarter: 2013Q1

REPORT INFORMATION
  Report Type: Spontaneous
  Country: US (occurrence: US)
  Receive Date: 20130119
  Receipt Date: 20130119
  Transmission Date: 20140127
  Serious: No
  Sender: FDA-Public Use
  Company Number: US-ALLERGAN-1117115US

PATIENT
  Sex: Female

DRUGS (3)
  1. BOTOX COSMETIC [Suspect]
     Indication: SKIN WRINKLING
     Dosage: 16 UNITS, SINGLE
     Route: 030
     Dates: start: 20111011, end: 20111011
  2. BOTOX COSMETIC [Suspect]
     Dosage: 8 UNITS, SINGLE
     Route: 030
     Dates: start: 20111011, end: 20111011
  3. BOTOX COSMETIC [Suspect]
     Dosage: 4 UNITS, SINGLE
     Route: 030
     Dates: start: 20111011, end: 20111011

REACTIONS (1)
  - Therapeutic response decreased [Unknown]
